FAERS Safety Report 23456335 (Version 7)
Quarter: 2024Q2

REPORT INFORMATION
  Report Type: Spontaneous
  Country: US (occurrence: US)
  Receive Date: 20240130
  Receipt Date: 20240507
  Transmission Date: 20240716
  Serious: No
  Sender: FDA-Public Use
  Company Number: US-PFIZER INC-202400011021

PATIENT
  Age: 13 Year
  Sex: Male

DRUGS (4)
  1. GENOTROPIN [Suspect]
     Active Substance: SOMATROPIN
     Indication: Growth hormone deficiency
     Dosage: 2.2 MG, 1X/DAY, EVERY NIGHT
  2. LUVOX [Concomitant]
     Active Substance: FLUVOXAMINE MALEATE
     Dosage: 25 MG
  3. VRAYLAR [Concomitant]
     Active Substance: CARIPRAZINE
     Dosage: 3 MG
  4. GUANFACINE [Concomitant]
     Active Substance: GUANFACINE
     Dosage: 1 MG

REACTIONS (2)
  - Device use error [Unknown]
  - Device leakage [Unknown]
